FAERS Safety Report 6670095-3 (Version None)
Quarter: 2010Q2

REPORT INFORMATION
  Report Type: 
  Country: None (occurrence: None)
  Receive Date: 20100406
  Receipt Date: 20100218
  Transmission Date: 20101027
  Serious: No
  Sender: FDA-Public Use
  Company Number: US-ALLERGAN-1002125US

PATIENT
  Sex: Female

DRUGS (1)
  1. LATISSE [Suspect]
     Indication: GROWTH OF EYELASHES
     Dosage: 2 GTT, ONCE AT NIGHT, AND ONCE IN MORNING

REACTIONS (3)
  - OCULAR HYPERAEMIA [None]
  - SINUS DISORDER [None]
  - WRONG TECHNIQUE IN DRUG USAGE PROCESS [None]
